FAERS Safety Report 8396791-8 (Version None)
Quarter: 2012Q2

REPORT INFORMATION
  Report Type: 
  Country: None (occurrence: None)
  Receive Date: 20120530
  Receipt Date: 20120511
  Transmission Date: 20120825
  Serious: Yes (Other)
  Sender: FDA-Public Use
  Company Number: PHHY2012BR040813

PATIENT
  Sex: Female
  Weight: 69 kg

DRUGS (3)
  1. CATAFLAM [Suspect]
     Indication: OROPHARYNGEAL PAIN
     Dosage: 1 DF, TID
     Route: 048
  2. GESTINOL [Concomitant]
     Indication: ORAL CONTRACEPTION
     Dosage: 1 DF, QD (AT NIGHT)
     Route: 048
  3. PURAN [Concomitant]
     Indication: THYROID DISORDER
     Dosage: 1 DF, QD (MORNING)
     Route: 048

REACTIONS (1)
  - UTERINE INFLAMMATION [None]
